FAERS Safety Report 7485590-7 (Version None)
Quarter: 2011Q2

REPORT INFORMATION
  Report Type: 
  Country: None (occurrence: None)
  Receive Date: 20110516
  Receipt Date: 20110516
  Transmission Date: 20111010
  Serious: No
  Sender: FDA-Public Use
  Company Number: None

PATIENT
  Sex: Male
  Weight: 49.805 kg

DRUGS (1)
  1. LAMICTAL ODT [Suspect]
     Dosage: 3 TABS BID 30 DAYS

REACTIONS (7)
  - HYPOAESTHESIA [None]
  - MUSCLE TWITCHING [None]
  - WEIGHT INCREASED [None]
  - INSOMNIA [None]
  - PAIN IN EXTREMITY [None]
  - STARING [None]
  - PARAESTHESIA [None]
